FAERS Safety Report 7979892-5 (Version None)
Quarter: 2011Q4

REPORT INFORMATION
  Report Type: 
  Country: None (occurrence: None)
  Receive Date: 20111214
  Receipt Date: 20111205
  Transmission Date: 20120403
  Serious: Yes (Other)
  Sender: FDA-Public Use
  Company Number: US-BAYER-2011-117950

PATIENT
  Age: 72 Year
  Sex: Female
  Weight: 81.633 kg

DRUGS (2)
  1. ALKA-SELTZER PM [Suspect]
     Dosage: 1 DF, QD
     Route: 048
     Dates: start: 20111120
  2. ALKA-SELTZER PM [Suspect]
     Indication: PRODUCT USED FOR UNKNOWN INDICATION
     Dosage: 2 DF, QD
     Dates: start: 20111119, end: 20111119

REACTIONS (6)
  - TINNITUS [None]
  - DYSKINESIA [None]
  - MUSCLE SPASMS [None]
  - HALLUCINATION, AUDITORY [None]
  - HALLUCINATION, VISUAL [None]
  - INSOMNIA [None]
